FAERS Safety Report 16962022 (Version 6)
Quarter: 2020Q1

REPORT INFORMATION
  Report Type: Report from Study
  Country: CO (occurrence: CO)
  Receive Date: 20191025
  Receipt Date: 20200320
  Transmission Date: 20200409
  Serious: Yes (Hospitalization, Other)
  Sender: FDA-Public Use
  Company Number: CO-ACTELION-A-CH2019-197406

PATIENT
  Age: 72 Year
  Sex: Female
  Weight: 68 kg

DRUGS (3)
  1. SILDENAFIL. [Concomitant]
     Active Substance: SILDENAFIL
     Dosage: UNK, TID
     Route: 048
  2. RIOCIGUAT. [Concomitant]
     Active Substance: RIOCIGUAT
     Dosage: UNK, TID
     Route: 048
  3. OPSUMIT [Suspect]
     Active Substance: MACITENTAN
     Indication: PULMONARY ARTERIAL HYPERTENSION
     Dosage: 10 MG, QD
     Route: 048
     Dates: start: 20190727

REACTIONS (16)
  - Back pain [Not Recovered/Not Resolved]
  - Hernia [Not Recovered/Not Resolved]
  - Choking sensation [Not Recovered/Not Resolved]
  - Dyspnoea [Not Recovered/Not Resolved]
  - Peripheral swelling [Not Recovered/Not Resolved]
  - Abdominal pain upper [Not Recovered/Not Resolved]
  - Chest pain [Not Recovered/Not Resolved]
  - Abdominal distension [Not Recovered/Not Resolved]
  - Portal hypertension [Not Recovered/Not Resolved]
  - Influenza [Not Recovered/Not Resolved]
  - Catheterisation cardiac [Unknown]
  - Choking [Recovering/Resolving]
  - Cardiac disorder [Recovering/Resolving]
  - Swelling face [Not Recovered/Not Resolved]
  - Pyrexia [Not Recovered/Not Resolved]
  - Cough [Recovering/Resolving]

NARRATIVE: CASE EVENT DATE: 2019
